FAERS Safety Report 24457312 (Version 2)
Quarter: 2024Q4

REPORT INFORMATION
  Report Type: Spontaneous
  Country: ES (occurrence: ES)
  Receive Date: 20241018
  Receipt Date: 20241023
  Transmission Date: 20250115
  Serious: Yes (Other)
  Sender: GE HEALTHCARE
  Company Number: ES-GE HEALTHCARE-2024CSU011431

PATIENT
  Age: 58 Year
  Sex: Male

DRUGS (1)
  1. OMNIPAQUE [Suspect]
     Active Substance: IOHEXOL
     Indication: Computerised tomogram
     Dosage: UNK, TOTAL
     Route: 042
     Dates: start: 20241001, end: 20241001

REACTIONS (1)
  - Air embolism [Not Recovered/Not Resolved]

NARRATIVE: CASE EVENT DATE: 20241001
